FAERS Safety Report 25682219 (Version 1)
Quarter: 2025Q3

REPORT INFORMATION
  Report Type: Spontaneous
  Country: US (occurrence: US)
  Receive Date: 20250814
  Receipt Date: 20250814
  Transmission Date: 20251020
  Serious: Yes (Life-Threatening, Other)
  Sender: EXELA PHARMA SCIENCES
  Company Number: US-EXELAPHARMA-2025EXLA00155

PATIENT
  Age: 43 Year
  Sex: Male

DRUGS (5)
  1. FENTANYL CITRATE [Suspect]
     Active Substance: FENTANYL CITRATE
     Indication: Sedation
  2. BUSPIRONE [Suspect]
     Active Substance: BUSPIRONE HYDROCHLORIDE
     Indication: Anxiety
  3. PROPOFOL [Concomitant]
     Active Substance: PROPOFOL
     Indication: Sedation
  4. BENZODIAZEPINE [Concomitant]
     Active Substance: BENZODIAZEPINE
  5. PAROXETINE [Concomitant]
     Active Substance: PAROXETINE
     Indication: Anxiety

REACTIONS (4)
  - Pyrexia [Recovered/Resolved]
  - Clonus [Unknown]
  - Serotonin syndrome [Unknown]
  - Labelled drug-drug interaction issue [Unknown]
